FAERS Safety Report 9247649 (Version 2)
Quarter: 2013Q3

REPORT INFORMATION
  Report Type: Report from Study
  Country: AU (occurrence: AU)
  Receive Date: 20130423
  Receipt Date: 20130808
  Transmission Date: 20140515
  Serious: Yes (Hospitalization)
  Sender: FDA-Public Use
  Company Number: PHHY2013AU039164

PATIENT
  Age: 89 Year
  Sex: Female
  Weight: 52 kg

DRUGS (6)
  1. ACLASTA [Suspect]
     Dosage: 5 MG, UNK
     Route: 042
     Dates: start: 20100311
  2. ACLASTA [Suspect]
     Dosage: 5 MG, UNK
     Route: 042
     Dates: start: 20110225
  3. ACLASTA [Suspect]
     Dosage: 5 MG, UNK
     Route: 042
     Dates: start: 20120227
  4. ACIMAX [Concomitant]
     Dosage: 20 MG, MANE
  5. FENTANYL [Concomitant]
     Dosage: 25 UG, EVERY 3/7
  6. LYRICA [Concomitant]
     Dosage: 25 MG, UNK
     Route: 048

REACTIONS (2)
  - Hip fracture [Recovered/Resolved with Sequelae]
  - Fall [Unknown]
